FAERS Safety Report 20189362 (Version 1)
Quarter: 2021Q4

REPORT INFORMATION
  Report Type: Spontaneous
  Country: EG (occurrence: EG)
  Receive Date: 20211215
  Receipt Date: 20211215
  Transmission Date: 20220303
  Serious: Yes (Hospitalization)
  Sender: FDA-Public Use
  Company Number: EG-PFIZER INC-202101329898

PATIENT
  Age: 65 Year
  Sex: Female

DRUGS (1)
  1. SUTENT [Suspect]
     Active Substance: SUNITINIB MALATE
     Indication: Gastrointestinal stromal tumour
     Dosage: ONCE DAILY AFTER LAUNCH, FOR 4 CONSECUTIVE WEEKS, FOLLOWED BY A 2-WEEKS REST PERIOD
     Route: 048
     Dates: start: 202103

REACTIONS (3)
  - Coma hepatic [Unknown]
  - Vomiting [Unknown]
  - Abdominal pain upper [Unknown]
